FAERS Safety Report 23743391 (Version 1)
Quarter: 2024Q2

REPORT INFORMATION
  Report Type: Spontaneous
  Country: US (occurrence: None)
  Receive Date: 20240413
  Receipt Date: 20240413
  Transmission Date: 20240715
  Serious: Yes (Disabling)
  Sender: FDA-Public Use
  Company Number: None

PATIENT
  Age: 68 Year
  Sex: Female
  Weight: 72.45 kg

DRUGS (8)
  1. LEVOCARNITINE\SEMAGLUTIDE [Suspect]
     Active Substance: LEVOCARNITINE\SEMAGLUTIDE
     Indication: Weight decreased
     Dosage: 5 UNITS WEEKLY SUBCUTANEOUS
     Route: 058
     Dates: start: 20240131, end: 20240222
  2. LISINOPRIL [Concomitant]
     Active Substance: LISINOPRIL
  3. DULOXETINE [Concomitant]
     Active Substance: DULOXETINE
  4. COENZYME Q10 [Concomitant]
     Active Substance: DIETARY SUPPLEMENT\UBIDECARENONE
  5. MULTI [Concomitant]
  6. DIETARY SUPPLEMENT [Concomitant]
     Active Substance: DIETARY SUPPLEMENT
  7. FISH OIL [Concomitant]
  8. FIBER [Concomitant]

REACTIONS (9)
  - Nausea [None]
  - Hypophagia [None]
  - Constipation [None]
  - Flatulence [None]
  - Abdominal distension [None]
  - Eructation [None]
  - Abdominal pain upper [None]
  - Abdominal distension [None]
  - Rash [None]

NARRATIVE: CASE EVENT DATE: 20240212
